FAERS Safety Report 10095727 (Version 4)
Quarter: 2017Q1

REPORT INFORMATION
  Report Type: Spontaneous
  Country: JP (occurrence: JP)
  Receive Date: 20140422
  Receipt Date: 20170223
  Transmission Date: 20170428
  Serious: Yes (Death, Hospitalization)
  Sender: FDA-Public Use
  Company Number: JP-AMGEN-JPNSP2014021416

PATIENT
  Age: 80 Year
  Sex: Male
  Weight: 50 kg

DRUGS (7)
  1. HUMULIN R [Concomitant]
     Active Substance: INSULIN HUMAN
     Indication: DIABETES MELLITUS
     Dosage: 10, QD
     Route: 042
     Dates: start: 20131231
  2. SODIUM PHOSPHATE [Concomitant]
     Active Substance: SODIUM PHOSPHATE
     Indication: HYPOPHOSPHATAEMIA
     Dosage: 1, QD
     Route: 042
     Dates: start: 20131231
  3. PRALIA [Suspect]
     Active Substance: DENOSUMAB
     Indication: HYPERCALCAEMIA
  4. KIDMIN [Concomitant]
     Active Substance: AMINO ACIDS\ELECTROLYTES NOS
     Indication: RENAL FAILURE
     Dosage: 200 ML, BID
     Route: 042
     Dates: start: 20131231
  5. ELEMENMIC [Concomitant]
     Active Substance: CUPRIC SULFATE\FERRIC CHLORIDE\MANGANESE CHLORIDE\POTASSIUM IODIDE\ZINC SULFATE
     Indication: PARENTERAL NUTRITION
     Dosage: UNK, QD
     Route: 042
     Dates: start: 20131231
  6. VITAJECT [Concomitant]
     Active Substance: CYANOCOBALAMIN\PYRIDOXAMINE HYDROCHLORIDE\THIAMINE HYDROCHLORIDE
     Indication: PARENTERAL NUTRITION
     Dosage: 1, QD
     Route: 042
     Dates: start: 20131231
  7. PRALIA [Suspect]
     Active Substance: DENOSUMAB
     Indication: OSTEOPOROSIS
     Dosage: 60 MG, Q6MO
     Route: 058
     Dates: start: 20140305, end: 20140305

REACTIONS (3)
  - Renal failure [Fatal]
  - Hypocalcaemia [Recovering/Resolving]
  - Hepatic failure [Fatal]

NARRATIVE: CASE EVENT DATE: 20140310
